FAERS Safety Report 9321143 (Version 1)
Quarter: 2013Q2

REPORT INFORMATION
  Report Type: Report from Study
  Country: CO (occurrence: CO)
  Receive Date: 20130531
  Receipt Date: 20130531
  Transmission Date: 20140414
  Serious: Yes (Other)
  Sender: FDA-Public Use
  Company Number: CO-ROCHE-1229112

PATIENT
  Age: 51 Year
  Sex: Female

DRUGS (1)
  1. RANIBIZUMAB [Suspect]
     Indication: DIABETIC RETINAL OEDEMA
     Route: 050
     Dates: end: 20130326

REACTIONS (3)
  - Eye haemorrhage [Unknown]
  - Diabetic retinopathy [Recovered/Resolved]
  - Vitreous haemorrhage [Recovered/Resolved]
